FAERS Safety Report 20373185 (Version 2)
Quarter: 2025Q4

REPORT INFORMATION
  Report Type: Spontaneous
  Country: EU (occurrence: EU)
  Receive Date: 20220125
  Receipt Date: 20251226
  Transmission Date: 20260117
  Serious: Yes (Hospitalization, Disabling, Congenital Anomaly)
  Sender: ACCORD
  Company Number: None

PATIENT
  Sex: Female

DRUGS (3)
  1. SERTRALINE [Suspect]
     Active Substance: SERTRALINE HYDROCHLORIDE
     Dosage: STRENGTH: 100 MG
     Route: 064
     Dates: start: 2018, end: 20190320
  2. OLANZAPINE [Suspect]
     Active Substance: OLANZAPINE
     Route: 064
     Dates: start: 2018, end: 20190320
  3. ANAFRANIL [Suspect]
     Active Substance: CLOMIPRAMINE HYDROCHLORIDE
     Dosage: STRENGTH: 75 MG
     Route: 064
     Dates: start: 2018, end: 20190320

REACTIONS (5)
  - Foetal exposure during pregnancy [Unknown]
  - Tachypnoea [Recovering/Resolving]
  - Impaired quality of life [Recovering/Resolving]
  - Cardiac failure [Recovered/Resolved]
  - Cardiomegaly [Unknown]

NARRATIVE: CASE EVENT DATE: 20190101
